FAERS Safety Report 4335038-6 (Version None)
Quarter: 2004Q2

REPORT INFORMATION
  Report Type: 
  Country: None (occurrence: None)
  Receive Date: 20040408
  Receipt Date: 20010131
  Transmission Date: 20050107
  Serious: Yes (Hospitalization)
  Sender: FDA-Public Use
  Company Number: GB-GLAXOSMITHKLINE-B0097703A

PATIENT
  Age: 7 Year
  Sex: Male
  Weight: 19.3 kg

DRUGS (7)
  1. EPIVIR [Suspect]
     Dosage: 80MG TWICE PER DAY
     Route: 048
     Dates: start: 20010126
  2. STAVUDINE [Suspect]
     Indication: HIV INFECTION
     Dosage: 20MG TWICE PER DAY
     Route: 048
     Dates: start: 20010126, end: 20010208
  3. EFAVIRENZ [Suspect]
     Dosage: 300MG PER DAY
     Route: 048
     Dates: start: 20010126
  4. DIDANOSINE [Concomitant]
     Dates: start: 19960801, end: 20010126
  5. COTRIM [Concomitant]
     Dosage: 480MG PER DAY
     Route: 048
  6. FOLIC ACID [Concomitant]
     Dosage: 5MG PER DAY
     Dates: start: 19960101
  7. PHENOXYMETHYL PENICILLIN [Concomitant]
     Indication: SICKLE CELL ANAEMIA
     Dosage: 250MG TWICE PER DAY
     Route: 048
     Dates: start: 19960101

REACTIONS (5)
  - ARTHRALGIA [None]
  - HYPERSENSITIVITY [None]
  - MALAISE [None]
  - MYALGIA [None]
  - PYREXIA [None]
